FAERS Safety Report 8958583 (Version 3)
Quarter: 2013Q1

REPORT INFORMATION
  Report Type: Spontaneous
  Country: US (occurrence: None)
  Receive Date: 20121203
  Receipt Date: 20121226
  Transmission Date: 20140127
  Serious: Yes (Hospitalization, Other)
  Sender: FDA-Public Use
  Company Number: JPI-P-026427

PATIENT
  Age: 57 Year
  Sex: Female
  Weight: 54.43 kg

DRUGS (5)
  1. XYREM (500 MILLIGRAM/MILLILITERS, SOLUTION) (SODIUM OXYBATE) [Suspect]
     Indication: CATAPLEXY
     Dosage: (4.5 GM, 2 IN 1 D)
     Route: 048
     Dates: start: 20091021
  2. ALENDRONATE [Concomitant]
  3. ATORVASTATIN CALCIUM [Concomitant]
  4. ALPRAZOLAM [Concomitant]
  5. FISH OIL [Concomitant]

REACTIONS (26)
  - Decreased appetite [None]
  - Weight decreased [None]
  - Diarrhoea [None]
  - Fall [None]
  - Head injury [None]
  - Foot fracture [None]
  - Laceration [None]
  - Thirst [None]
  - Muscle spasms [None]
  - Osteopenia [None]
  - Amnesia [None]
  - Amnesia [None]
  - Metabolic disorder [None]
  - Hypoaesthesia [None]
  - Respiratory rate increased [None]
  - Abnormal dreams [None]
  - Headache [None]
  - Decreased appetite [None]
  - Depression [None]
  - Hypoaesthesia [None]
  - Pain in extremity [None]
  - Blood cholesterol increased [None]
  - Peripheral coldness [None]
  - Bronchitis [None]
  - Arthralgia [None]
  - Somnambulism [None]
